FAERS Safety Report 7148038-8 (Version None)
Quarter: 2010Q4

REPORT INFORMATION
  Report Type: 
  Country: None (occurrence: None)
  Receive Date: 20101209
  Receipt Date: 20101201
  Transmission Date: 20110411
  Serious: Yes (Hospitalization)
  Sender: FDA-Public Use
  Company Number: US-JNJFOC-20101201795

PATIENT
  Sex: Female
  Weight: 156.95 kg

DRUGS (3)
  1. FENTANYL-100 [Suspect]
     Indication: BONE DISORDER
     Route: 062
  2. FENTANYL-100 [Suspect]
     Route: 062
  3. FENTANYL-100 [Suspect]
     Indication: BONE DISORDER
     Route: 062

REACTIONS (3)
  - HOSPITALISATION [None]
  - PRODUCT ADHESION ISSUE [None]
  - WRONG TECHNIQUE IN DRUG USAGE PROCESS [None]
